FAERS Safety Report 13334276 (Version 2)
Quarter: 2017Q2

REPORT INFORMATION
  Report Type: Report from Study
  Country: None (occurrence: SE)
  Receive Date: 20170313
  Receipt Date: 20170403
  Transmission Date: 20170830
  Serious: Yes (Death, Other)
  Sender: FDA-Public Use
  Company Number: SE-ABBVIE-16P-150-1826690-00

PATIENT
  Age: 69 Year
  Sex: Male
  Weight: 72.8 kg

DRUGS (4)
  1. LASIX [Concomitant]
     Active Substance: FUROSEMIDE
     Indication: PRODUCT USED FOR UNKNOWN INDICATION
  2. DUODOPA [Suspect]
     Active Substance: CARBIDOPA\LEVODOPA
     Route: 050
     Dates: start: 20150826
  3. DUODOPA [Suspect]
     Active Substance: CARBIDOPA\LEVODOPA
     Indication: PARKINSON^S DISEASE
     Route: 050
     Dates: start: 20150527, end: 20150826
  4. WARFARINE (WARAN) [Concomitant]
     Indication: PRODUCT USED FOR UNKNOWN INDICATION

REACTIONS (20)
  - Anaemia [Unknown]
  - Laboratory test abnormal [Unknown]
  - Aneurysm [Unknown]
  - Erythema [Unknown]
  - Oedema [Unknown]
  - Urethritis [Unknown]
  - Cardiac failure [Fatal]
  - Bone decalcification [Unknown]
  - Spinal compression fracture [Unknown]
  - Head injury [Recovered/Resolved]
  - Face injury [Recovered/Resolved]
  - Fatigue [Unknown]
  - Blood creatinine increased [Unknown]
  - Inguinal hernia [Unknown]
  - Fall [Recovered/Resolved]
  - Back pain [Unknown]
  - Right ventricular failure [Unknown]
  - Cardiomegaly [Unknown]
  - Night sweats [Unknown]
  - Weight decreased [Unknown]

NARRATIVE: CASE EVENT DATE: 2016
